FAERS Safety Report 9894854 (Version 1)
Quarter: 2014Q1

REPORT INFORMATION
  Report Type: Spontaneous
  Country: FR (occurrence: FR)
  Receive Date: 20140213
  Receipt Date: 20140213
  Transmission Date: 20141002
  Serious: Yes (Hospitalization)
  Sender: FDA-Public Use
  Company Number: FR-ABBVIE-14P-056-1200303-00

PATIENT
  Age: 75 Year
  Sex: Male

DRUGS (6)
  1. DEPAKINE CHRONO [Suspect]
     Indication: EPILEPSY
     Route: 048
  2. ANTIBIOTICS [Concomitant]
     Indication: PRODUCT USED FOR UNKNOWN INDICATION
     Dates: start: 201312
  3. GARDENAL [Concomitant]
     Indication: PRODUCT USED FOR UNKNOWN INDICATION
  4. ALLOPURINOL [Concomitant]
     Indication: PRODUCT USED FOR UNKNOWN INDICATION
  5. FENOFIBRATE [Concomitant]
     Indication: PRODUCT USED FOR UNKNOWN INDICATION
  6. GINKGO BILOBA (GINKGO BILOBA) [Concomitant]
     Indication: PRODUCT USED FOR UNKNOWN INDICATION

REACTIONS (4)
  - Psychomotor retardation [Recovered/Resolved]
  - Encephalopathy [Recovered/Resolved]
  - Ammonia increased [Recovered/Resolved]
  - Confusional state [Recovered/Resolved]
